FAERS Safety Report 5838978-1 (Version None)
Quarter: 2008Q3

REPORT INFORMATION
  Report Type: 
  Country: None (occurrence: None)
  Receive Date: 20080808
  Receipt Date: 20080724
  Transmission Date: 20090109
  Serious: No
  Sender: FDA-Public Use
  Company Number: US-BOEHRINGER INGELHEIM GMBH, GERMANY-2008-BP-10402BP

PATIENT
  Sex: Male

DRUGS (17)
  1. FLOMAX [Suspect]
     Indication: BENIGN PROSTATIC HYPERPLASIA
     Route: 048
     Dates: start: 20080501
  2. FLOMAX [Suspect]
     Indication: NOCTURIA
  3. ASPIRIN [Concomitant]
  4. DULCOLAX [Concomitant]
  5. SENOKOT [Concomitant]
  6. VITAMIN B-12 [Concomitant]
  7. METFORMIN HCL [Concomitant]
     Route: 048
  8. METOPROLOL TARTRATE [Concomitant]
     Route: 048
  9. FLUOXETINE [Concomitant]
     Route: 048
  10. ZOLPIDEM [Concomitant]
     Route: 048
  11. TERAZOSIN HCL [Concomitant]
     Route: 048
  12. LOVASTATIN [Concomitant]
     Route: 048
  13. FINASTERIDE [Concomitant]
     Route: 048
  14. PLAVIX [Concomitant]
     Route: 048
  15. TYLENOL W/ CODEINE NO. 4 [Concomitant]
  16. ISOSORBIDE MONONITRATE ER [Concomitant]
     Route: 048
  17. ACTOS [Concomitant]
     Route: 048

REACTIONS (2)
  - DRUG INEFFECTIVE [None]
  - NOCTURIA [None]
